FAERS Safety Report 6860941-2 (Version None)
Quarter: 2010Q3

REPORT INFORMATION
  Report Type: 
  Country: None (occurrence: None)
  Receive Date: 20100715
  Receipt Date: 20100708
  Transmission Date: 20110219
  Serious: Yes (Other)
  Sender: FDA-Public Use
  Company Number: 2010SP037905

PATIENT
  Age: 25 Year
  Sex: Male

DRUGS (2)
  1. AERIUS (DESLORATADINE /01398501/) 5 MG [Suspect]
     Indication: HYPERSENSITIVITY
     Dosage: PO
     Route: 048
     Dates: start: 20080101
  2. CANNABIS [Concomitant]

REACTIONS (3)
  - AGGRESSION [None]
  - AGITATION [None]
  - PALPITATIONS [None]
